FAERS Safety Report 25026018 (Version 2)
Quarter: 2025Q3

REPORT INFORMATION
  Report Type: Report from Study
  Country: US (occurrence: US)
  Receive Date: 20250301
  Receipt Date: 20250731
  Transmission Date: 20251020
  Serious: Yes (Hospitalization, Other)
  Sender: ABBVIE
  Company Number: US-ABBVIE-6073536

PATIENT
  Age: 73 Year
  Sex: Female

DRUGS (1)
  1. IMBRUVICA [Suspect]
     Active Substance: IBRUTINIB
     Indication: B-cell small lymphocytic lymphoma
     Route: 048

REACTIONS (8)
  - Syncope [Unknown]
  - Fatigue [Unknown]
  - Chromaturia [Recovering/Resolving]
  - Nephrolithiasis [Recovered/Resolved]
  - Stomatitis [Recovering/Resolving]
  - Memory impairment [Unknown]
  - Nausea [Unknown]
  - Gallbladder disorder [Recovering/Resolving]

NARRATIVE: CASE EVENT DATE: 20241226
